FAERS Safety Report 9723743 (Version 2)
Quarter: 2014Q2

REPORT INFORMATION
  Report Type: Spontaneous
  Country: US (occurrence: US)
  Receive Date: 20131202
  Receipt Date: 20140404
  Transmission Date: 20141212
  Serious: Yes (Other)
  Sender: FDA-Public Use
  Company Number: PHHY2013US136008

PATIENT
  Age: 62 Year
  Sex: Male

DRUGS (11)
  1. BUDESONIDE [Suspect]
     Indication: DIARRHOEA
  2. IMATINIB [Suspect]
     Dosage: 200 MG, DAILY
  3. ACETYLSALICYLIC ACID [Suspect]
  4. LORATADINE [Suspect]
  5. FAMOTIDINE [Suspect]
  6. MONTELUKAST SODIUM [Suspect]
  7. DOXEPIN [Suspect]
  8. MESALAMINE [Suspect]
     Indication: DIARRHOEA
  9. WARFARIN [Suspect]
  10. OXYCODONE HYDROCHLORIDE [Suspect]
  11. LORAZEPAM [Suspect]

REACTIONS (12)
  - Pulmonary embolism [Unknown]
  - Deep vein thrombosis [Unknown]
  - Pain [Recovering/Resolving]
  - Weight decreased [Unknown]
  - Fatigue [Unknown]
  - Anhedonia [Unknown]
  - Depression [Unknown]
  - Lethargy [Unknown]
  - Feeling cold [Unknown]
  - Constipation [Unknown]
  - Drug effect incomplete [Unknown]
  - Drug ineffective [Unknown]
